FAERS Safety Report 4826377-0 (Version None)
Quarter: 2005Q4

REPORT INFORMATION
  Report Type: 
  Country: None (occurrence: None)
  Receive Date: 20051111
  Receipt Date: 20051103
  Transmission Date: 20060501
  Serious: Yes (Hospitalization)
  Sender: FDA-Public Use
  Company Number: LB-ABBOTT-05P-093-0316408-00

PATIENT
  Age: 66 Year
  Sex: Female

DRUGS (2)
  1. DEPAKENE [Suspect]
     Indication: POSTOPERATIVE CARE
     Route: 048
     Dates: start: 20050928, end: 20051014
  2. CLONAZEPAM [Concomitant]
     Indication: DRUG USE FOR UNKNOWN INDICATION
     Route: 048

REACTIONS (4)
  - AGITATION [None]
  - CONFUSIONAL STATE [None]
  - HYPERAMMONAEMIA [None]
  - METABOLIC ENCEPHALOPATHY [None]
